FAERS Safety Report 22103776 (Version 1)
Quarter: 2023Q1

REPORT INFORMATION
  Report Type: Spontaneous
  Country: CH (occurrence: CH)
  Receive Date: 20230316
  Receipt Date: 20230316
  Transmission Date: 20230417
  Serious: Yes (Other)
  Sender: FDA-Public Use
  Company Number: None

PATIENT
  Age: 94 Year
  Sex: Female
  Weight: 42.5 kg

DRUGS (21)
  1. REMERON [Suspect]
     Active Substance: MIRTAZAPINE
     Dosage: 15 MILLIGRAM, QD
     Route: 048
     Dates: start: 20230227
  2. REMERON [Suspect]
     Active Substance: MIRTAZAPINE
     Dosage: 15 MILLIGRAM, QD
     Route: 048
     Dates: start: 202207, end: 20220930
  3. REMERON [Suspect]
     Active Substance: MIRTAZAPINE
     Dosage: 30 MILLIGRAM
     Route: 048
     Dates: start: 20221001, end: 20230226
  4. LAMICTAL [Suspect]
     Active Substance: LAMOTRIGINE
     Dosage: IN THE MORNING
     Route: 048
     Dates: start: 202207
  5. LAMICTAL [Suspect]
     Active Substance: LAMOTRIGINE
     Dosage: IN THE EVENING
     Route: 048
     Dates: start: 202207
  6. LAMICTAL [Suspect]
     Active Substance: LAMOTRIGINE
     Dosage: UNK
     Route: 048
     Dates: start: 20220420, end: 202207
  7. MELATONIN [Suspect]
     Active Substance: MELATONIN
     Dosage: 4 MILLIGRAM, QD
     Route: 048
     Dates: start: 20230221
  8. MELATONIN [Suspect]
     Active Substance: MELATONIN
     Dosage: 2 MILLIGRAM, QD
     Route: 048
     Dates: start: 20220929, end: 20230220
  9. CLOMETHIAZOLE [Suspect]
     Active Substance: CLOMETHIAZOLE
     Dosage: 192 MG 3X/J IN 2 EUROS INTENTION
     Route: 048
     Dates: start: 20220926
  10. QUETIAPINE [Suspect]
     Active Substance: QUETIAPINE
     Indication: Anxiety
     Dosage: 5 MILLIGRAM, QD
     Route: 048
     Dates: start: 20220802, end: 20221003
  11. QUETIAPINE [Suspect]
     Active Substance: QUETIAPINE
     Dosage: 22.5 MILLIGRAM, QD
     Route: 048
     Dates: start: 20221004, end: 20221018
  12. QUETIAPINE [Suspect]
     Active Substance: QUETIAPINE
     Dosage: MAX 5MG 3X/J ; AS NECESSARY
     Route: 048
     Dates: start: 20221019, end: 20221120
  13. QUETIAPINE [Suspect]
     Active Substance: QUETIAPINE
     Dosage: 12.5 MILLIGRAM, QD
     Route: 048
     Dates: start: 20221121, end: 20230226
  14. QUETIAPINE [Suspect]
     Active Substance: QUETIAPINE
     Dosage: 5 MILLIGRAM, QD
     Route: 048
     Dates: start: 20230227
  15. QUETIAPINE [Suspect]
     Active Substance: QUETIAPINE
     Dosage: 5MG 2X/J ; AS NECESSARY
     Route: 048
     Dates: start: 20230227
  16. CALCIUM\CHOLECALCIFEROL [Concomitant]
     Active Substance: CALCIUM\CHOLECALCIFEROL
     Dosage: UNK
     Route: 048
  17. DAFALGAN [Concomitant]
     Active Substance: ACETAMINOPHEN
     Indication: Pain
     Dosage: AS NECESSARY
     Route: 048
  18. FIG FRUIT OIL\SORBITOL [Concomitant]
     Active Substance: FIG FRUIT OIL\SORBITOL
     Dosage: UNK
     Route: 048
  19. ENOXAPARIN SODIUM [Concomitant]
     Active Substance: ENOXAPARIN SODIUM
     Indication: Pain
     Dosage: UNK
     Route: 058
  20. SODIUM PICOSULFATE [Concomitant]
     Active Substance: SODIUM PICOSULFATE
     Dosage: AS NECESSARY
     Route: 048
  21. DICLOFENAC EPOLAMINE [Concomitant]
     Active Substance: DICLOFENAC EPOLAMINE
     Indication: Back pain
     Dosage: AS NECESSARY
     Route: 062

REACTIONS (2)
  - Somnolence [Not Recovered/Not Resolved]
  - Psychomotor retardation [Not Recovered/Not Resolved]

NARRATIVE: CASE EVENT DATE: 20220901
